FAERS Safety Report 22362750 (Version 1)
Quarter: 2023Q2

REPORT INFORMATION
  Report Type: Spontaneous
  Country: IT (occurrence: IT)
  Receive Date: 20230524
  Receipt Date: 20230524
  Transmission Date: 20230722
  Serious: Yes (Other)
  Sender: FDA-Public Use
  Company Number: None

PATIENT
  Age: 43 Year
  Sex: Female

DRUGS (1)
  1. CAPRELSA [Suspect]
     Active Substance: VANDETANIB
     Dosage: 100 MG 3/DAY
     Dates: start: 20230313, end: 20230404

REACTIONS (4)
  - Electrocardiogram QT prolonged [Recovering/Resolving]
  - Transaminases increased [Recovering/Resolving]
  - Erythema [Recovering/Resolving]
  - Diarrhoea [Recovering/Resolving]

NARRATIVE: CASE EVENT DATE: 20230323
